FAERS Safety Report 4684427-9 (Version None)
Quarter: 2005Q2

REPORT INFORMATION
  Report Type: 
  Country: None (occurrence: None)
  Receive Date: 20050531
  Receipt Date: 20040526
  Transmission Date: 20051028
  Serious: Yes (Other)
  Sender: FDA-Public Use
  Company Number: 200412478US

PATIENT
  Age: 21 Day
  Sex: Male
  Weight: 3.99 kg

DRUGS (9)
  1. LOVENOX [Suspect]
     Indication: DEEP VEIN THROMBOSIS
     Dosage: 100 MG Q12H TRM
     Dates: start: 20040205
  2. LOVENOX [Suspect]
     Indication: HYPERCOAGULATION
     Dosage: 100 MG Q12H TRM
     Dates: start: 20040205
  3. LOVENOX [Suspect]
     Indication: THROMBOPHLEBITIS
     Dosage: 100 MG Q12H TRM
     Dates: start: 20040205
  4. LOVENOX [Suspect]
     Indication: DEEP VEIN THROMBOSIS
     Dosage: 150 MG Q12H TRM
  5. LOVENOX [Suspect]
     Indication: HYPERCOAGULATION
     Dosage: 150 MG Q12H TRM
  6. LOVENOX [Suspect]
     Indication: THROMBOPHLEBITIS
     Dosage: 150 MG Q12H TRM
  7. LOVENOX [Suspect]
     Indication: HYPERCOAGULATION
     Dosage: 150 MG QD TRM
     Dates: end: 20040320
  8. LOVENOX [Suspect]
     Indication: THROMBOPHLEBITIS
     Dosage: 150 MG QD TRM
     Dates: end: 20040320
  9. LOVENOX [Suspect]
     Indication: THROMBOSIS
     Dosage: 150 MG QD TRM
     Dates: end: 20040320

REACTIONS (3)
  - HAEMATOCHEZIA [None]
  - LIVER FUNCTION TEST ABNORMAL [None]
  - WEIGHT DECREASED [None]
